FAERS Safety Report 15827502 (Version 1)
Quarter: 2019Q1

REPORT INFORMATION
  Report Type: Spontaneous
  Country: US (occurrence: US)
  Receive Date: 20190115
  Receipt Date: 20190115
  Transmission Date: 20190417
  Serious: Yes (Other)
  Sender: FDA-Public Use
  Company Number: PHEH2019US001321

PATIENT
  Sex: Female

DRUGS (1)
  1. FARYDAK [Suspect]
     Active Substance: PANOBINOSTAT
     Indication: PLASMA CELL MYELOMA
     Dosage: 1 DF, UNK (TAKE 1 CAPSULE DAY 1,3,5,15,17,19)
     Route: 048

REACTIONS (2)
  - Malignant neoplasm progression [Unknown]
  - Plasma cell myeloma [Unknown]
